FAERS Safety Report 9639885 (Version 3)
Quarter: 2013Q4

REPORT INFORMATION
  Report Type: Spontaneous
  Country: US (occurrence: US)
  Receive Date: 20131023
  Receipt Date: 20131106
  Transmission Date: 20140711
  Serious: Yes (Hospitalization, Other)
  Sender: FDA-Public Use
  Company Number: US-CELGENEUS-163-21880-13090529

PATIENT
  Age: 83 Year
  Sex: Male

DRUGS (2)
  1. REVLIMID [Suspect]
     Indication: PLASMA CELL MYELOMA
     Dosage: 25 MILLIGRAM
     Route: 048
     Dates: start: 20121027, end: 2013
  2. REVLIMID [Suspect]
     Dosage: 15 MILLIGRAM
     Route: 048
     Dates: start: 201303, end: 20130807

REACTIONS (3)
  - Dermatitis [Recovered/Resolved]
  - Pancytopenia [Not Recovered/Not Resolved]
  - Plasma cell myeloma [Not Recovered/Not Resolved]
